FAERS Safety Report 8975130 (Version 1)
Quarter: 2012Q4

REPORT INFORMATION
  Report Type: 
  Country: US (occurrence: US)
  Receive Date: 20121219
  Receipt Date: 20121219
  Transmission Date: 20130627
  Serious: No
  Sender: FDA-Public Use
  Company Number: US-TEVA-376894USA

PATIENT
  Age: 24 Year
  Sex: Female
  Weight: 81.72 kg

DRUGS (1)
  1. PLAN B ONE-STEP [Suspect]
     Indication: ABORTION INDUCED
     Dosage: 1.5 Milligram Daily;
     Route: 048

REACTIONS (4)
  - Exposure during pregnancy [Unknown]
  - Wrong drug administered [Unknown]
  - Off label use [Unknown]
  - Pregnancy [Unknown]
